FAERS Safety Report 4747957-7 (Version None)
Quarter: 2005Q3

REPORT INFORMATION
  Report Type: 
  Country: None (occurrence: None)
  Receive Date: 20050818
  Receipt Date: 20050803
  Transmission Date: 20060218
  Serious: Yes (Other)
  Sender: FDA-Public Use
  Company Number: US-AMGEN-US145278

PATIENT
  Sex: Female

DRUGS (2)
  1. ENBREL [Suspect]
     Indication: RHEUMATOID ARTHRITIS
     Dates: start: 20040115, end: 20041101
  2. PREDNISONE [Concomitant]

REACTIONS (16)
  - ABDOMINAL PAIN UPPER [None]
  - ALOPECIA [None]
  - CATARACT [None]
  - CONTUSION [None]
  - CYST [None]
  - DYSPEPSIA [None]
  - EYE SWELLING [None]
  - FACE OEDEMA [None]
  - GASTROINTESTINAL DISORDER [None]
  - HEPATIC CYST [None]
  - OEDEMA PERIPHERAL [None]
  - OESOPHAGEAL MASS [None]
  - PAIN OF SKIN [None]
  - PARAESTHESIA [None]
  - THYROID MASS [None]
  - WEIGHT INCREASED [None]
